FAERS Safety Report 6058558-5 (Version None)
Quarter: 2009Q1

REPORT INFORMATION
  Report Type: 
  Country: None (occurrence: None)
  Receive Date: 20090130
  Receipt Date: 20090123
  Transmission Date: 20090719
  Serious: No
  Sender: FDA-Public Use
  Company Number: US-BAYER-200911898NA

PATIENT
  Age: 25 Year
  Sex: Female
  Weight: 100 kg

DRUGS (5)
  1. YASMIN [Suspect]
     Indication: CONTRACEPTION
     Route: 048
     Dates: start: 20070101, end: 20080901
  2. RISPERDAL [Concomitant]
  3. METHACARBOMAL (NOS) [Concomitant]
  4. CYCLOBENZAPRINE HCL [Concomitant]
  5. IBUPROFEN TABLETS [Concomitant]

REACTIONS (1)
  - PREGNANCY ON ORAL CONTRACEPTIVE [None]
